FAERS Safety Report 7652834-8 (Version None)
Quarter: 2011Q3

REPORT INFORMATION
  Report Type: 
  Country: None (occurrence: None)
  Receive Date: 20110803
  Receipt Date: 20110721
  Transmission Date: 20111222
  Serious: Yes (Other)
  Sender: FDA-Public Use
  Company Number: ES-CELGENEUS-144-50794-11072416

PATIENT

DRUGS (1)
  1. VIDAZA [Suspect]
     Route: 041

REACTIONS (1)
  - TACHYCARDIA [None]
